FAERS Safety Report 5366283-9 (Version None)
Quarter: 2007Q2

REPORT INFORMATION
  Report Type: 
  Country: None (occurrence: None)
  Receive Date: 20070619
  Receipt Date: 20070619
  Transmission Date: 20071010
  Serious: Yes (Other)
  Sender: FDA-Public Use
  Company Number: None

PATIENT
  Age: 37 Year
  Sex: Male
  Weight: 132.4503 kg

DRUGS (15)
  1. LOVASTATIN [Suspect]
     Indication: HYPERLIPIDAEMIA
     Dosage: 20 MG EVERY EVENING PO
     Route: 048
     Dates: start: 20070409, end: 20070618
  2. LOVASTATIN [Suspect]
     Indication: LOW DENSITY LIPOPROTEIN INCREASED
     Dosage: 20 MG EVERY EVENING PO
     Route: 048
     Dates: start: 20070409, end: 20070618
  3. ALLOPURINOL [Concomitant]
  4. ASPIRIN [Concomitant]
  5. RANITIDINE [Concomitant]
  6. METFORMIN [Concomitant]
  7. FELODIPINE [Concomitant]
  8. GLYBURIDE [Concomitant]
  9. DOXAZOSIN MESYLATE [Concomitant]
  10. SPIRONOLACTONE [Concomitant]
  11. ENALAPRIL [Concomitant]
  12. FUROSEMIDE [Concomitant]
  13. POTASSIUM CHLORIDE [Concomitant]
  14. METOPROLOL SUCCINATE [Concomitant]
  15. WARFARIN SODIUM [Concomitant]

REACTIONS (1)
  - HEPATIC ENZYME INCREASED [None]
